FAERS Safety Report 20080074 (Version 10)
Quarter: 2023Q1

REPORT INFORMATION
  Report Type: Report from Study
  Country: DE (occurrence: DE)
  Receive Date: 20211117
  Receipt Date: 20230130
  Transmission Date: 20230418
  Serious: Yes (Other)
  Sender: FDA-Public Use
  Company Number: DE-002147023-NVSC2020DE228478

PATIENT
  Age: 75 Year
  Sex: Female
  Weight: 49 kg

DRUGS (14)
  1. LETROZOLE [Suspect]
     Active Substance: LETROZOLE
     Indication: Breast cancer
     Dosage: 2.5 MILLIGRAM, QD
     Route: 048
     Dates: start: 20200701
  2. LETROZOLE [Suspect]
     Active Substance: LETROZOLE
     Indication: Hormone receptor positive HER2 negative breast cancer
  3. KISQALI [Suspect]
     Active Substance: RIBOCICLIB
     Indication: Breast cancer
     Dosage: 600 MG, QD (21 DAYS INTAKE, 7 DAYS PAUSE)
     Route: 048
     Dates: start: 20200701
  4. KISQALI [Suspect]
     Active Substance: RIBOCICLIB
     Indication: Hormone receptor positive HER2 negative breast cancer
     Dosage: 21 DAYS INTAKE, 7 DAYS PAUSE, START:29-JUL-2020
     Route: 048
  5. KISQALI [Suspect]
     Active Substance: RIBOCICLIB
     Dosage: 21 DAYS INTAKE, 7 DAYS PAUSE, START:09-SEP-2020
     Route: 048
     Dates: start: 20200909
  6. KISQALI [Suspect]
     Active Substance: RIBOCICLIB
     Dosage: 21 DAYS INTAKE, 7 DAYS PAUSE, START:10-NOV-2020
     Route: 048
     Dates: start: 20201110
  7. KISQALI [Suspect]
     Active Substance: RIBOCICLIB
     Dosage: 21 DAYS INTAKE, 7 DAYS PAUSE, START:09-DEC-2020
     Route: 048
     Dates: start: 20201209
  8. KISQALI [Suspect]
     Active Substance: RIBOCICLIB
     Dosage: 21 DAYS INTAKE, 7 DAYS PAUSE, START:17-FEB-2021
     Route: 048
     Dates: start: 20210217
  9. KISQALI [Suspect]
     Active Substance: RIBOCICLIB
     Dosage: UNK
     Route: 065
  10. KISQALI [Suspect]
     Active Substance: RIBOCICLIB
     Dosage: 400 MILLIGRAM, QD, START:22-DEC-2021
     Route: 065
     Dates: start: 20211222
  11. KISQALI [Suspect]
     Active Substance: RIBOCICLIB
     Dosage: 400 MILLIGRAM, QD, START:17-NOV-2021
     Route: 065
     Dates: start: 20211117
  12. KISQALI [Suspect]
     Active Substance: RIBOCICLIB
     Dosage: SCHEME 21 DAYS INTAKE, 7 DAYS PAUSE
     Route: 048
  13. KISQALI [Suspect]
     Active Substance: RIBOCICLIB
     Dosage: 400 MG,QD SCHEMA 21 D INTAKE 7 DAYS PAUSE)
     Route: 048
     Dates: start: 20220921
  14. KISQALI [Suspect]
     Active Substance: RIBOCICLIB
     Dosage: 400 MG, QD 21 DAYS INTAKE, 7 DAYS PAUSE
     Route: 048
     Dates: start: 20220310

REACTIONS (10)
  - Fatigue [Not Recovered/Not Resolved]
  - Urinary tract infection [Recovered/Resolved]
  - Depression [Not Recovered/Not Resolved]
  - Headache [Recovered/Resolved]
  - Blood creatinine increased [Not Recovered/Not Resolved]
  - Toothache [Not Recovered/Not Resolved]
  - Sleep disorder [Not Recovered/Not Resolved]
  - Anaemia [Not Recovered/Not Resolved]
  - Diplopia [Recovered/Resolved]
  - Peri-implantitis [Recovered/Resolved]

NARRATIVE: CASE EVENT DATE: 20200715
